FAERS Safety Report 4295016-2 (Version None)
Quarter: 2004Q1

REPORT INFORMATION
  Report Type: 
  Country: None (occurrence: None)
  Receive Date: 20040212
  Receipt Date: 20040212
  Transmission Date: 20041129
  Serious: No
  Sender: FDA-Public Use
  Company Number: None

PATIENT
  Age: 80 Year
  Sex: Female
  Weight: 67.586 kg

DRUGS (5)
  1. TEQUIN [Suspect]
     Indication: CHRONIC OBSTRUCTIVE AIRWAYS DISEASE
     Dosage: 400 MG IV
     Route: 042
     Dates: start: 20040202
  2. TEQUIN [Suspect]
     Indication: CONDITION AGGRAVATED
     Dosage: 400 MG IV
     Route: 042
     Dates: start: 20040202
  3. SOLU-MEDROL [Concomitant]
  4. ALBUTEROL/ ATROVENT NEB [Concomitant]
  5. ASPIRIN [Concomitant]

REACTIONS (2)
  - BLINDNESS TRANSIENT [None]
  - COLD SWEAT [None]
